FAERS Safety Report 17783201 (Version 3)
Quarter: 2020Q4

REPORT INFORMATION
  Report Type: Spontaneous
  Country: US (occurrence: US)
  Receive Date: 20200514
  Receipt Date: 20201120
  Transmission Date: 20210113
  Serious: No
  Sender: FDA-Public Use
  Company Number: US-PFIZER INC-2020192376

PATIENT
  Age: 56 Year

DRUGS (1)
  1. VENLAFAXINE HCL [Suspect]
     Active Substance: VENLAFAXINE HYDROCHLORIDE
     Dosage: UNK

REACTIONS (5)
  - Dizziness [Unknown]
  - Drug ineffective [Unknown]
  - Palpitations [Unknown]
  - Dyspnoea [Unknown]
  - Insomnia [Unknown]
